FAERS Safety Report 11979650 (Version 1)
Quarter: 2016Q1

REPORT INFORMATION
  Report Type: Spontaneous
  Country: DK (occurrence: DK)
  Receive Date: 20160129
  Receipt Date: 20160129
  Transmission Date: 20160526
  Serious: Yes (Other)
  Sender: FDA-Public Use
  Company Number: DK-VALIDUS PHARMACEUTICALS LLC-DK-2016VAL000126

PATIENT

DRUGS (3)
  1. CALCIUM CARBONATE. [Suspect]
     Active Substance: CALCIUM CARBONATE
     Indication: GASTROINTESTINAL TRACT ADENOMA
     Dosage: 1250 MG, UNK
  2. ASPIRIN                            /00002701/ [Suspect]
     Active Substance: ASPIRIN
     Indication: GASTROINTESTINAL TRACT ADENOMA
     Dosage: 75 MG, UNK
  3. CALCITRIOL. [Suspect]
     Active Substance: CALCITRIOL
     Indication: GASTROINTESTINAL TRACT ADENOMA
     Dosage: 0.5 ?G, UNK

REACTIONS (23)
  - Respiratory disorder [Unknown]
  - Inner ear disorder [Unknown]
  - Hepatobiliary disease [Unknown]
  - Mediastinal disorder [Unknown]
  - Infection [Unknown]
  - Nervous system disorder [Unknown]
  - Pericarditis [Unknown]
  - Gastric perforation [Unknown]
  - Poisoning [Unknown]
  - Musculoskeletal disorder [Unknown]
  - Neoplasm [Unknown]
  - Injury [Unknown]
  - Neoplasm malignant [Unknown]
  - Mental disorder [Unknown]
  - Angiopathy [Unknown]
  - Lymphatic disorder [Unknown]
  - Diarrhoea [Unknown]
  - Benign neoplasm [Unknown]
  - Ear disorder [Unknown]
  - Abdominal pain upper [Unknown]
  - Connective tissue disorder [Unknown]
  - Gastrointestinal disorder [Unknown]
  - Blood disorder [Unknown]
